FAERS Safety Report 6046214-9 (Version None)
Quarter: 2009Q1

REPORT INFORMATION
  Report Type: 
  Country: None (occurrence: None)
  Receive Date: 20090122
  Receipt Date: 20081219
  Transmission Date: 20090719
  Serious: Yes (Hospitalization, Other)
  Sender: FDA-Public Use
  Company Number: US-PFIZER INC-2008092688

PATIENT
  Sex: Female
  Weight: 88.889 kg

DRUGS (12)
  1. GABAPENTIN [Suspect]
     Indication: MIGRAINE
     Route: 048
     Dates: end: 20080101
  2. NEURONTIN [Suspect]
     Dosage: UNK
     Dates: end: 20081001
  3. POLYGAM S/D [Suspect]
     Indication: MYASTHENIA GRAVIS
     Dosage: UNK
     Route: 042
     Dates: start: 20081008, end: 20081010
  4. CELLCEPT [Concomitant]
     Dosage: UNK
     Dates: end: 20080101
  5. MIDRIN [Concomitant]
  6. FISH OIL [Concomitant]
  7. MELATONIN [Concomitant]
  8. IBUPROFEN [Concomitant]
  9. MESTINON [Concomitant]
     Dosage: UNK
  10. ALBUTEROL [Concomitant]
     Dosage: UNK
  11. ADVAIR DISKUS 100/50 [Concomitant]
  12. ALL OTHER THERAPEUTIC PRODUCTS [Concomitant]

REACTIONS (16)
  - ABDOMINAL PAIN [None]
  - ALANINE AMINOTRANSFERASE INCREASED [None]
  - ASPARTATE AMINOTRANSFERASE INCREASED [None]
  - BLOOD CHLORIDE INCREASED [None]
  - BLOOD PRESSURE INCREASED [None]
  - BODY TEMPERATURE FLUCTUATION [None]
  - BONE PAIN [None]
  - CONTRAINDICATION TO MEDICAL TREATMENT [None]
  - DIZZINESS [None]
  - HEADACHE [None]
  - HEMIPARESIS [None]
  - MENINGITIS ASEPTIC [None]
  - MYASTHENIA GRAVIS [None]
  - NAUSEA [None]
  - PALPITATIONS [None]
  - PARALYSIS [None]
